FAERS Safety Report 4775839-3 (Version None)
Quarter: 2005Q3

REPORT INFORMATION
  Report Type: 
  Country: None (occurrence: None)
  Receive Date: 20050922
  Receipt Date: 20050919
  Transmission Date: 20060218
  Serious: Yes (Hospitalization)
  Sender: FDA-Public Use
  Company Number: US-MERCK-0509USA02501

PATIENT
  Age: 63 Year

DRUGS (1)
  1. STROMECTOL [Suspect]
     Route: 048
     Dates: start: 20040831, end: 20040831

REACTIONS (4)
  - APHASIA [None]
  - ASTHENIA [None]
  - COMA [None]
  - HYPERSENSITIVITY [None]
